FAERS Safety Report 25597456 (Version 1)
Quarter: 2025Q3

REPORT INFORMATION
  Report Type: Report from Study
  Country: MY (occurrence: MY)
  Receive Date: 20250723
  Receipt Date: 20250723
  Transmission Date: 20251021
  Serious: Yes (Death, Hospitalization)
  Sender: NOVARTIS
  Company Number: MY-002147023-NVSC2024MY232120

PATIENT
  Sex: Female

DRUGS (2)
  1. RIBOCICLIB [Suspect]
     Active Substance: RIBOCICLIB
     Indication: Breast cancer
     Route: 065
  2. FEMARA [Suspect]
     Active Substance: LETROZOLE
     Indication: Breast cancer
     Route: 065

REACTIONS (3)
  - Cerebrovascular accident [Fatal]
  - Constipation [Unknown]
  - Loss of consciousness [Unknown]
